FAERS Safety Report 22309924 (Version 1)
Quarter: 2023Q2

REPORT INFORMATION
  Report Type: Spontaneous
  Country: US (occurrence: None)
  Receive Date: 20230510
  Receipt Date: 20230510
  Transmission Date: 20230722
  Serious: Yes (unspecified)
  Sender: FDA-Public Use
  Company Number: None

PATIENT
  Age: 10 Month
  Sex: Female
  Weight: 12.15 kg

DRUGS (1)
  1. PREDNISOLONE SODIUM PHOSPHATE ORAL SOLUTION [Suspect]
     Active Substance: PREDNISOLONE SODIUM PHOSPHATE
     Indication: Croup infectious

REACTIONS (1)
  - Rash [None]

NARRATIVE: CASE EVENT DATE: 20221021
